FAERS Safety Report 7367503-1 (Version None)
Quarter: 2011Q1

REPORT INFORMATION
  Report Type: 
  Country: None (occurrence: None)
  Receive Date: 20110322
  Receipt Date: 20110223
  Transmission Date: 20110831
  Serious: No
  Sender: FDA-Public Use
  Company Number: US-B.I. PHARMACEUTICALS,INC./RIDGEFIELD-2011-BP-06856BP

PATIENT
  Age: 73 Year
  Sex: Female

DRUGS (8)
  1. SYNTHROID [Concomitant]
     Indication: HYPOTHYROIDISM
  2. TRICOR [Concomitant]
     Indication: BLOOD CHOLESTEROL INCREASED
  3. PRADAXA [Suspect]
     Indication: ATRIAL FIBRILLATION
     Dosage: 300 MG
     Route: 048
     Dates: start: 20110217
  4. SOTALOL HCL [Concomitant]
     Indication: ATRIAL FIBRILLATION
  5. LOSARTAN POTASSIUM [Concomitant]
     Indication: HYPERTENSION
  6. RESTORIL [Concomitant]
     Indication: SLEEP DISORDER
  7. LIPITOR [Concomitant]
     Indication: BLOOD CHOLESTEROL INCREASED
  8. ACTOS [Concomitant]
     Indication: TYPE 2 DIABETES MELLITUS

REACTIONS (2)
  - DYSPEPSIA [None]
  - NIGHTMARE [None]
